FAERS Safety Report 4439903-0 (Version None)
Quarter: 2004Q3

REPORT INFORMATION
  Report Type: 
  Country: None (occurrence: None)
  Receive Date: 20040831
  Receipt Date: 20040823
  Transmission Date: 20050211
  Serious: Yes (Other)
  Sender: FDA-Public Use
  Company Number: 200412864BCC

PATIENT
  Age: 82 Year
  Sex: Male
  Weight: 72.5755 kg

DRUGS (5)
  1. ALEVE [Suspect]
     Indication: PAIN
     Dosage: 220-440 MG, PRN, ORAL
     Route: 048
     Dates: end: 20040608
  2. VASOTEC [Concomitant]
  3. B-12 [Concomitant]
  4. VITAMIN E GEL [Concomitant]
  5. ASPIRIN [Concomitant]

REACTIONS (6)
  - CHROMATURIA [None]
  - ESCHERICHIA INFECTION [None]
  - HYPERTENSION [None]
  - HYPOCHONDRIASIS [None]
  - NERVOUSNESS [None]
  - URINARY TRACT INFECTION [None]
